FAERS Safety Report 21745416 (Version 1)
Quarter: 2022Q4

REPORT INFORMATION
  Report Type: Report from Study
  Country: US (occurrence: US)
  Receive Date: 20221219
  Receipt Date: 20221219
  Transmission Date: 20230112
  Serious: No
  Sender: FDA-Public Use
  Company Number: US-ABBVIE-4220284

PATIENT
  Sex: Female

DRUGS (1)
  1. HUMIRA [Suspect]
     Active Substance: ADALIMUMAB
     Indication: Psoriasis
     Dosage: CF, FORM STRENGTH: 40MG
     Route: 058

REACTIONS (5)
  - COVID-19 [Unknown]
  - Illness [Unknown]
  - Influenza [Unknown]
  - Sinus disorder [Unknown]
  - Tooth disorder [Unknown]
